FAERS Safety Report 5198934-6 (Version None)
Quarter: 2006Q4

REPORT INFORMATION
  Report Type: 
  Country: None (occurrence: None)
  Receive Date: 20060921
  Receipt Date: 20050914
  Transmission Date: 20070319
  Serious: Yes (Other)
  Sender: FDA-Public Use
  Company Number: 2005130003

PATIENT
  Sex: Male
  Weight: 86.1834 kg

DRUGS (4)
  1. DILANTIN [Suspect]
     Indication: CONVULSION PROPHYLAXIS
     Dosage: ORAL
     Route: 048
     Dates: start: 20050801, end: 20050801
  2. AVODART [Concomitant]
  3. HYTRIN [Concomitant]
  4. MULTIVITAMIN [Concomitant]

REACTIONS (4)
  - BLOOD LACTATE DEHYDROGENASE INCREASED [None]
  - HYPERSENSITIVITY [None]
  - IMMUNOGLOBULINS INCREASED [None]
  - RED BLOOD CELL SEDIMENTATION RATE INCREASED [None]
